FAERS Safety Report 6843709-2 (Version None)
Quarter: 2010Q3

REPORT INFORMATION
  Report Type: 
  Country: None (occurrence: None)
  Receive Date: 20100715
  Receipt Date: 20100707
  Transmission Date: 20110219
  Serious: Yes (Other)
  Sender: FDA-Public Use
  Company Number: US-JNJFOC-20100602640

PATIENT
  Sex: Female

DRUGS (9)
  1. DURAGESIC-100 [Suspect]
     Indication: BACK PAIN
     Route: 062
  2. DURAGESIC-100 [Suspect]
     Route: 062
  3. DURAGESIC-100 [Suspect]
     Route: 062
  4. TYLENOL W/ CODEINE NO. 3 [Concomitant]
     Indication: BREAKTHROUGH PAIN
     Dosage: AS NEEDED
     Route: 048
  5. VALIUM [Concomitant]
     Indication: MUSCLE SPASMS
     Route: 048
  6. SOMA [Concomitant]
     Indication: MUSCLE SPASMS
     Dosage: AS NEEDED
     Route: 048
  7. FLECTOR PATCHES [Concomitant]
     Indication: PAIN
     Route: 062
  8. LUNESTA [Concomitant]
     Indication: SLEEP DISORDER
     Route: 048
  9. UNSPECIFED MEDICATIONS [Concomitant]
     Route: 065

REACTIONS (10)
  - APPLICATION SITE RASH [None]
  - BODY HEIGHT DECREASED [None]
  - BODY TEMPERATURE INCREASED [None]
  - CATARACT [None]
  - DRUG DOSE OMISSION [None]
  - DRUG EFFECT INCREASED [None]
  - HEADACHE [None]
  - INADEQUATE ANALGESIA [None]
  - MALAISE [None]
  - PRODUCT ADHESION ISSUE [None]
